FAERS Safety Report 12297781 (Version 2)
Quarter: 2016Q2

REPORT INFORMATION
  Report Type: Spontaneous
  Country: DE (occurrence: DE)
  Receive Date: 20160422
  Receipt Date: 20160609
  Transmission Date: 20160815
  Serious: Yes (Hospitalization, Disabling)
  Sender: FDA-Public Use
  Company Number: DE-B.I. PHARMACEUTICALS,INC./RIDGEFIELD-2016-BI-24766DE

PATIENT
  Age: 48 Year
  Sex: Female
  Weight: 53 kg

DRUGS (2)
  1. GILOTRIF [Suspect]
     Active Substance: AFATINIB
     Indication: BRONCHIAL CARCINOMA
  2. GILOTRIF [Suspect]
     Active Substance: AFATINIB
     Indication: LUNG NEOPLASM MALIGNANT
     Dosage: 40 MG
     Route: 048
     Dates: start: 201505, end: 201604

REACTIONS (6)
  - Aggression [Unknown]
  - Dementia [Recovered/Resolved]
  - Motor dysfunction [Not Recovered/Not Resolved]
  - Disorientation [Not Recovered/Not Resolved]
  - Cognitive disorder [Not Recovered/Not Resolved]
  - Psychotic disorder [Unknown]

NARRATIVE: CASE EVENT DATE: 201601
